FAERS Safety Report 21383485 (Version 1)
Quarter: 2022Q3

REPORT INFORMATION
  Report Type: Spontaneous
  Country: PT (occurrence: PT)
  Receive Date: 20220927
  Receipt Date: 20220927
  Transmission Date: 20221027
  Serious: Yes (Other)
  Sender: FDA-Public Use
  Company Number: PT-EMA-DD-20220912-7180175-114109

PATIENT
  Age: 83 Year
  Sex: Male

DRUGS (12)
  1. RIVAROXABAN [Interacting]
     Active Substance: RIVAROXABAN
     Indication: Hypertension
     Dosage: UNK
     Route: 048
  2. FINASTERIDE [Interacting]
     Active Substance: FINASTERIDE
     Indication: Hypertension
     Dosage: UNK
     Route: 065
  3. PASSIFLORA INCARNATA FLOWER\VALERIAN [Interacting]
     Active Substance: PASSIFLORA INCARNATA FLOWER\VALERIAN
     Indication: Product used for unknown indication
     Dosage: UNK
     Route: 065
  4. ROPINIROLE [Interacting]
     Active Substance: ROPINIROLE
     Indication: Hypertension
     Dosage: 0.5 MILLIGRAM, 3 TIMES A DAY
     Route: 065
  5. ROPINIROLE [Interacting]
     Active Substance: ROPINIROLE
     Indication: Hypertension
     Dosage: 0.5 MILLIGRAM, TWO TIMES A DAY
     Route: 065
  6. GABAPENTIN [Interacting]
     Active Substance: GABAPENTIN
     Indication: Myoclonus
     Dosage: UNK
     Route: 065
  7. LERCANIDIPINE HYDROCHLORIDE [Interacting]
     Active Substance: LERCANIDIPINE HYDROCHLORIDE
     Indication: Hypertension
     Dosage: UNK
     Route: 065
  8. CLEBOPRIDE [Interacting]
     Active Substance: CLEBOPRIDE
     Indication: Dyspepsia
     Dosage: 0.5 MILLIGRAM, TWO TIMES A DAY
     Route: 065
     Dates: start: 201911, end: 202007
  9. AMIODARONE [Interacting]
     Active Substance: AMIODARONE
     Indication: Hypertension
     Dosage: UNK
     Route: 065
  10. SIMVASTATIN [Interacting]
     Active Substance: SIMVASTATIN
     Indication: Hypertension
     Dosage: UNK
     Route: 065
  11. ESOMEPRAZOLE [Concomitant]
     Active Substance: ESOMEPRAZOLE
     Dosage: 20 MILLIGRAM, TID
  12. HYDROCHLOROTHIAZIDE\VALSARTAN [Concomitant]
     Active Substance: HYDROCHLOROTHIAZIDE\VALSARTAN
     Indication: Hypertension
     Dosage: UNK (2.5/160 MILLIGRAM)
     Route: 065

REACTIONS (4)
  - Dyskinesia [Unknown]
  - Drug interaction [Recovered/Resolved]
  - Nausea [Unknown]
  - Tremor [Recovered/Resolved]

NARRATIVE: CASE EVENT DATE: 20200701
